FAERS Safety Report 5302158-9 (Version None)
Quarter: 2007Q2

REPORT INFORMATION
  Report Type: 
  Country: None (occurrence: None)
  Receive Date: 20070416
  Receipt Date: 20070416
  Transmission Date: 20071010
  Serious: Yes (Hospitalization)
  Sender: FDA-Public Use
  Company Number: None

PATIENT
  Sex: Male
  Weight: 103 kg

DRUGS (3)
  1. CYCLOSPORINE [Suspect]
     Dosage: SEE IMAGE
  2. CYTARABINE [Suspect]
     Dosage: SEE IMAGE
  3. DAUNORUBICIN [Suspect]
     Dosage: SEE IMAGE

REACTIONS (6)
  - COMPUTERISED TOMOGRAM ABNORMAL [None]
  - DRUG TOXICITY [None]
  - ENTEROCOCCAL SEPSIS [None]
  - GENERAL PHYSICAL HEALTH DETERIORATION [None]
  - SEPTIC EMBOLUS [None]
  - TREMOR [None]
